FAERS Safety Report 16754240 (Version 7)
Quarter: 2021Q3

REPORT INFORMATION
  Report Type: Report from Study
  Country: US (occurrence: US)
  Receive Date: 20190829
  Receipt Date: 20210701
  Transmission Date: 20211014
  Serious: Yes (Hospitalization)
  Sender: FDA-Public Use
  Company Number: US-ROCHE-2392963

PATIENT
  Age: 67 Year
  Sex: Male
  Weight: 75.2 kg

DRUGS (24)
  1. PLACEBO [Suspect]
     Active Substance: UNSPECIFIED INGREDIENT
     Indication: DIFFUSE LARGE B-CELL LYMPHOMA
     Dosage: DATE AND MOST RECENT DOSE PRIOR TO ONSET OF SAE: 19/AUG/2019
     Route: 042
     Dates: start: 20190620
  2. VINCRISTINE [Suspect]
     Active Substance: VINCRISTINE
     Indication: DIFFUSE LARGE B-CELL LYMPHOMA
     Dosage: MOST RECENT DOSE OF BLINDED VINCRISTIN  19/AUG/2019
     Route: 042
     Dates: start: 20190619
  3. PREDNISONE. [Suspect]
     Active Substance: PREDNISONE
     Indication: DIFFUSE LARGE B-CELL LYMPHOMA
     Dosage: 100 MILLIGRAMS PER DAY (MG/DAY) ORALLY (PO) ON DAYS 1?5 OF EVERY 21?DAY CYCLE FOR 6 CYCLES. ?DATE AN
     Route: 042
     Dates: start: 20190619
  4. PEGFILGRASTIM [Concomitant]
     Active Substance: PEGFILGRASTIM
     Route: 058
     Dates: start: 20190820, end: 20190820
  5. LOPERAMIDE [Concomitant]
     Active Substance: LOPERAMIDE
     Indication: HYPONATRAEMIA
     Route: 048
     Dates: start: 20190907, end: 20190915
  6. OMEGA 3 [Concomitant]
     Active Substance: OMEGA-3 FATTY ACIDS
     Route: 048
  7. SIMETHICONE (DIMETHICONE) [Concomitant]
     Active Substance: DIMETHICONE
     Indication: ABDOMINAL DISTENSION
     Route: 048
     Dates: end: 20200203
  8. LOPERAMIDE [Concomitant]
     Active Substance: LOPERAMIDE
     Indication: HYPOKALAEMIA
     Route: 048
     Dates: start: 20190908, end: 20190915
  9. LOMOTIL [Concomitant]
     Active Substance: ATROPINE SULFATE\DIPHENOXYLATE HYDROCHLORIDE
     Indication: DIARRHOEA
     Route: 048
     Dates: start: 20190915, end: 20200113
  10. HYDROCODONE [Concomitant]
     Active Substance: HYDROCODONE
     Indication: COLITIS
     Route: 048
     Dates: start: 20190903, end: 20200203
  11. RITUXIMAB. [Suspect]
     Active Substance: RITUXIMAB
     Indication: DIFFUSE LARGE B-CELL LYMPHOMA
     Dosage: DATE AND MOST RECENT DOSE OF RITUXIMAB PRIOR TO ONSET OF SAE: 19/AUG/2019, 758 MG
     Route: 042
     Dates: start: 20190619
  12. HYDROCORTISONE. [Concomitant]
     Active Substance: HYDROCORTISONE
     Indication: PRURITUS
     Route: 061
     Dates: start: 20190823
  13. ALLOPURINOL. [Concomitant]
     Active Substance: ALLOPURINOL
     Indication: PROPHYLAXIS
     Route: 048
     Dates: start: 20190611, end: 20191014
  14. PROCHLORPERAZINE. [Concomitant]
     Active Substance: PROCHLORPERAZINE
     Indication: PROPHYLAXIS OF NAUSEA AND VOMITING
     Route: 048
     Dates: start: 20190611, end: 20200203
  15. ACETAMINOPHEN. [Concomitant]
     Active Substance: ACETAMINOPHEN
     Indication: PAIN
     Route: 048
  16. ACYCLOVIR. [Concomitant]
     Active Substance: ACYCLOVIR
     Route: 048
     Dates: start: 20190905, end: 20190915
  17. ONDANSETRON [Concomitant]
     Active Substance: ONDANSETRON
     Indication: PROPHYLAXIS OF NAUSEA AND VOMITING
     Route: 048
     Dates: start: 20190611, end: 20200203
  18. PEGFILGRASTIM [Concomitant]
     Active Substance: PEGFILGRASTIM
     Route: 058
     Dates: start: 20190730, end: 20190730
  19. FAMOTIDINE. [Concomitant]
     Active Substance: FAMOTIDINE
     Indication: ABDOMINAL DISTENSION
     Route: 048
     Dates: start: 20200113
  20. PSYLLIUM [Concomitant]
     Active Substance: PLANTAGO SEED
     Indication: HYPONATRAEMIA
     Route: 048
     Dates: start: 20190910, end: 20190915
  21. CHOLESTYRAMINE. [Concomitant]
     Active Substance: CHOLESTYRAMINE
     Indication: HYPONATRAEMIA
     Route: 048
     Dates: start: 20190909, end: 20190915
  22. DOXORUBICIN [Suspect]
     Active Substance: DOXORUBICIN
     Indication: DIFFUSE LARGE B-CELL LYMPHOMA
     Dosage: 50 MG/M^2 IV ON DAY 1 ?DATE AND MOST RECENT DOSE OF DOXORUBICIN PRIOR TO ONSET OF SAE: 19/AUG/2019,
     Route: 042
     Dates: start: 20190619
  23. CYCLOPHOSPHAMIDE. [Suspect]
     Active Substance: CYCLOPHOSPHAMIDE
     Indication: DIFFUSE LARGE B-CELL LYMPHOMA
     Dosage: DATE AND MOST RECENT DOSE OF CYCLOPHOSPHAMIDE PRIOR TO ONSET OF SAE: 19/AUG/2019, 1516 MG
     Route: 042
     Dates: start: 20190619
  24. FLORASTOR [SACCHAROMYCES BOULARDII] [Concomitant]
     Indication: HYPONATRAEMIA
     Route: 048
     Dates: start: 20190910, end: 20190915

REACTIONS (4)
  - Small intestinal perforation [Recovered/Resolved]
  - Abdominal infection [Recovered/Resolved]
  - Small intestinal obstruction [Recovered/Resolved]
  - Hyponatraemia [Recovered/Resolved]

NARRATIVE: CASE EVENT DATE: 20190823
